FAERS Safety Report 24060754 (Version 1)
Quarter: 2024Q3

REPORT INFORMATION
  Report Type: Spontaneous
  Country: US (occurrence: US)
  Receive Date: 20240708
  Receipt Date: 20240708
  Transmission Date: 20241016
  Serious: Yes (Hospitalization)
  Sender: PFIZER
  Company Number: US-PFIZER INC-202400207141

PATIENT
  Age: 66 Year
  Sex: Male
  Weight: 60.3 kg

DRUGS (12)
  1. CAMPTOSAR [Suspect]
     Active Substance: IRINOTECAN HYDROCHLORIDE
     Indication: Pancreatic carcinoma
     Dosage: 305 MG, SINGLE
     Route: 042
     Dates: start: 20220815, end: 20220815
  2. CAMPTOSAR [Suspect]
     Active Substance: IRINOTECAN HYDROCHLORIDE
     Dosage: 305 MG, SINGLE
     Route: 042
     Dates: start: 20220829, end: 20220829
  3. CAMPTOSAR [Suspect]
     Active Substance: IRINOTECAN HYDROCHLORIDE
     Dosage: 305 MG, SINGLE
     Route: 042
     Dates: start: 20220912, end: 20220912
  4. CAMPTOSAR [Suspect]
     Active Substance: IRINOTECAN HYDROCHLORIDE
     Dosage: 305 MG, SINGLE
     Route: 042
     Dates: start: 20220926, end: 20220926
  5. CAMPTOSAR [Suspect]
     Active Substance: IRINOTECAN HYDROCHLORIDE
     Dosage: 287 MG, SINGLE
     Route: 042
     Dates: start: 20221010, end: 20221010
  6. CAMPTOSAR [Suspect]
     Active Substance: IRINOTECAN HYDROCHLORIDE
     Dosage: 287 MG, SINGLE
     Route: 042
     Dates: start: 20221024, end: 20221024
  7. CAMPTOSAR [Suspect]
     Active Substance: IRINOTECAN HYDROCHLORIDE
     Dosage: 287 MG, SINGLE
     Route: 042
     Dates: start: 20221107, end: 20221107
  8. CAMPTOSAR [Suspect]
     Active Substance: IRINOTECAN HYDROCHLORIDE
     Dosage: 287 MG, SINGLE
     Route: 042
     Dates: start: 20221121, end: 20221121
  9. CAMPTOSAR [Suspect]
     Active Substance: IRINOTECAN HYDROCHLORIDE
     Dosage: 287 MG, SINGLE
     Route: 042
     Dates: start: 20221205, end: 20221205
  10. CAMPTOSAR [Suspect]
     Active Substance: IRINOTECAN HYDROCHLORIDE
     Dosage: 287 MG, SINGLE
     Route: 042
     Dates: start: 20221219, end: 20221219
  11. CAMPTOSAR [Suspect]
     Active Substance: IRINOTECAN HYDROCHLORIDE
     Dosage: 287 MG, SINGLE
     Route: 042
     Dates: start: 20230109, end: 20230109
  12. CAMPTOSAR [Suspect]
     Active Substance: IRINOTECAN HYDROCHLORIDE
     Dosage: 287 MG, SINGLE
     Route: 042
     Dates: start: 20230123, end: 20230123

REACTIONS (7)
  - Klebsiella bacteraemia [Unknown]
  - Cholangitis [Unknown]
  - Decreased appetite [Unknown]
  - Fatigue [Unknown]
  - Weight decreased [Unknown]
  - Neoplasm progression [Unknown]
  - Off label use [Unknown]
